FAERS Safety Report 6197138-8 (Version None)
Quarter: 2009Q2

REPORT INFORMATION
  Report Type: 
  Country: None (occurrence: None)
  Receive Date: 20090518
  Receipt Date: 20090518
  Transmission Date: 20091009
  Serious: No
  Sender: FDA-Public Use
  Company Number: None

PATIENT
  Age: 46 Year
  Sex: Female
  Weight: 69.4003 kg

DRUGS (1)
  1. ADVIL [Suspect]
     Indication: ARTHRALGIA
     Dosage: 2 TABLETS 200 MG TAKEN 1 TIME PO
     Route: 048
     Dates: start: 20090515, end: 20090516

REACTIONS (1)
  - CHEST PAIN [None]
